FAERS Safety Report 20481612 (Version 1)
Quarter: 2022Q1

REPORT INFORMATION
  Report Type: Spontaneous
  Country: US (occurrence: None)
  Receive Date: 20220216
  Receipt Date: 20220216
  Transmission Date: 20220423
  Serious: Yes (Hospitalization)
  Sender: FDA-Public Use
  Company Number: None

PATIENT
  Age: 63 Year
  Sex: Female

DRUGS (1)
  1. DIMETHYL FUMARATE [Suspect]
     Active Substance: DIMETHYL FUMARATE
     Dosage: 240 MG BID ORAL?
     Route: 048
     Dates: start: 202008

REACTIONS (6)
  - Fall [None]
  - Fatigue [None]
  - Visual impairment [None]
  - Head injury [None]
  - Therapy interrupted [None]
  - Feeling abnormal [None]

NARRATIVE: CASE EVENT DATE: 20220216
